FAERS Safety Report 5875678-6 (Version None)
Quarter: 2008Q3

REPORT INFORMATION
  Report Type: 
  Country: None (occurrence: None)
  Receive Date: 20080904
  Receipt Date: 20080822
  Transmission Date: 20090109
  Serious: Yes (Hospitalization)
  Sender: FDA-Public Use
  Company Number: 2008AL005410

PATIENT
  Age: 71 Year
  Sex: Female
  Weight: 52.1637 kg

DRUGS (14)
  1. DIGOXIN [Suspect]
     Indication: CARDIAC VALVE DISEASE
     Dosage: 0.125MG, DAILY, PO
     Route: 048
  2. LASIX [Concomitant]
  3. K-DUR [Concomitant]
  4. CAPOTEN [Concomitant]
  5. AVAPRO [Concomitant]
  6. LOPRESSOR [Concomitant]
  7. CALCIUM [Concomitant]
  8. SYNTHROID [Concomitant]
  9. PRAVACHOL [Concomitant]
  10. COUMADIN [Concomitant]
  11. RESTORIL [Concomitant]
  12. SBE PROPHYLAXIS [Concomitant]
  13. VAGIFEM [Concomitant]
  14. ZAROXOLYN [Concomitant]

REACTIONS (5)
  - AORTIC STENOSIS [None]
  - CEREBRAL ATROPHY [None]
  - CEREBROVASCULAR ACCIDENT [None]
  - LOSS OF CONSCIOUSNESS [None]
  - PHARMACEUTICAL PRODUCT COMPLAINT [None]
